FAERS Safety Report 24666727 (Version 4)
Quarter: 2025Q2

REPORT INFORMATION
  Report Type: Spontaneous
  Country: US (occurrence: US)
  Receive Date: 20241126
  Receipt Date: 20250511
  Transmission Date: 20250717
  Serious: No
  Sender: SANOFI AVENTIS
  Company Number: US-SA-2024SA341630

PATIENT
  Age: 53 Year
  Sex: Female

DRUGS (3)
  1. DUPIXENT [Suspect]
     Active Substance: DUPILUMAB
     Indication: Asthma
     Route: 058
     Dates: start: 202409, end: 202409
  2. DUPIXENT [Suspect]
     Active Substance: DUPILUMAB
     Indication: Food allergy
     Dosage: 300 MG, QOW
     Route: 058
     Dates: start: 2024
  3. PREDNISONE [Concomitant]
     Active Substance: PREDNISONE

REACTIONS (21)
  - Injection site urticaria [Recovered/Resolved]
  - Influenza like illness [Recovered/Resolved with Sequelae]
  - Pain [Recovered/Resolved with Sequelae]
  - Fatigue [Recovered/Resolved with Sequelae]
  - Bronchitis [Recovering/Resolving]
  - Cough [Recovering/Resolving]
  - Crepitations [Recovering/Resolving]
  - Wheezing [Recovering/Resolving]
  - Nausea [Unknown]
  - Headache [Unknown]
  - Condition aggravated [Unknown]
  - Sinusitis [Unknown]
  - Ear infection [Unknown]
  - Injection site pain [Not Recovered/Not Resolved]
  - Injection site swelling [Not Recovered/Not Resolved]
  - Arthralgia [Unknown]
  - Asthma [Recovered/Resolved]
  - Inappropriate schedule of product administration [Unknown]
  - Accidental exposure to product [Unknown]
  - Exposure via skin contact [Unknown]
  - Product use in unapproved indication [Unknown]

NARRATIVE: CASE EVENT DATE: 20240101
